FAERS Safety Report 4731573-7 (Version None)
Quarter: 2005Q3

REPORT INFORMATION
  Report Type: 
  Country: None (occurrence: None)
  Receive Date: 20050801
  Receipt Date: 20050801
  Transmission Date: 20060218
  Serious: Yes (Hospitalization)
  Sender: FDA-Public Use
  Company Number: None

PATIENT
  Sex: Male

DRUGS (1)
  1. VELCADE [Suspect]
     Indication: DIFFUSE LARGE B-CELL LYMPHOMA
     Dosage: 1.3MG IV D1 + D4 OF 21 DAY CYCLE

REACTIONS (6)
  - BACK PAIN [None]
  - CEREBROSPINAL FLUID LEAKAGE [None]
  - CONSTIPATION [None]
  - HEADACHE [None]
  - NAUSEA [None]
  - POST PROCEDURAL COMPLICATION [None]
